FAERS Safety Report 16182565 (Version 1)
Quarter: 2019Q2

REPORT INFORMATION
  Report Type: Spontaneous
  Country: PL (occurrence: PL)
  Receive Date: 20190411
  Receipt Date: 20190411
  Transmission Date: 20190711
  Serious: Yes (Other)
  Sender: FDA-Public Use
  Company Number: PL-ROCHE-2299465

PATIENT
  Age: 8 Year
  Sex: Female

DRUGS (3)
  1. METHYLPREDNISOLONE. [Concomitant]
     Active Substance: METHYLPREDNISOLONE
     Indication: NONINFECTIVE ENCEPHALITIS
  2. RITUXIMAB. [Suspect]
     Active Substance: RITUXIMAB
     Indication: NONINFECTIVE ENCEPHALITIS
     Route: 065
     Dates: start: 2018
  3. TOCILIZUMAB. [Suspect]
     Active Substance: TOCILIZUMAB
     Indication: NONINFECTIVE ENCEPHALITIS
     Route: 058
     Dates: start: 20190320

REACTIONS (6)
  - Paralysis [Unknown]
  - Malignant atrophic papulosis [Unknown]
  - Off label use [Unknown]
  - Intentional product use issue [Unknown]
  - Neurogenic bladder [Unknown]
  - Gait inability [Unknown]

NARRATIVE: CASE EVENT DATE: 201810
